FAERS Safety Report 6667474-7 (Version None)
Quarter: 2010Q2

REPORT INFORMATION
  Report Type: 
  Country: None (occurrence: None)
  Receive Date: 20100405
  Receipt Date: 20100326
  Transmission Date: 20101027
  Serious: Yes (Hospitalization)
  Sender: FDA-Public Use
  Company Number: TW-ROCHE-694017

PATIENT
  Age: 28 Year
  Sex: Male

DRUGS (2)
  1. PEGASYS [Suspect]
     Route: 058
  2. ROBATROL [Suspect]
     Route: 048

REACTIONS (1)
  - DIABETIC KETOACIDOSIS [None]
